FAERS Safety Report 7942255-2 (Version None)
Quarter: 2011Q4

REPORT INFORMATION
  Report Type: 
  Country: None (occurrence: None)
  Receive Date: 20111123
  Receipt Date: 20111123
  Transmission Date: 20120403
  Serious: Yes (Death, Hospitalization)
  Sender: FDA-Public Use
  Company Number: None

PATIENT
  Age: 90 Year
  Sex: Female
  Weight: 54.5 kg

DRUGS (1)
  1. PROLIA [Suspect]
     Indication: OSTEOPOROSIS
     Dosage: 1 SHOT
     Dates: start: 20110518

REACTIONS (8)
  - CHEST PAIN [None]
  - DYSPNOEA [None]
  - VIITH NERVE PARALYSIS [None]
  - LACERATION [None]
  - DISORIENTATION [None]
  - BALANCE DISORDER [None]
  - FALL [None]
  - AMNESIA [None]
